FAERS Safety Report 11389274 (Version 3)
Quarter: 2015Q3

REPORT INFORMATION
  Report Type: Report from Study
  Country: DE (occurrence: DE)
  Receive Date: 20150817
  Receipt Date: 20150923
  Transmission Date: 20151125
  Serious: Yes (Other)
  Sender: FDA-Public Use
  Company Number: DE-INCYTE CORPORATION-2015IN003154

PATIENT
  Age: 72 Year
  Sex: Male

DRUGS (9)
  1. LITALIR [Concomitant]
     Active Substance: HYDROXYUREA
     Indication: PRODUCT USED FOR UNKNOWN INDICATION
     Dosage: 2000 MG, QD
     Route: 065
     Dates: start: 20150407, end: 20150419
  2. TAVANIC [Concomitant]
     Active Substance: LEVOFLOXACIN
     Indication: PERITONITIS
  3. TAVANIC [Concomitant]
     Active Substance: LEVOFLOXACIN
     Indication: SPLENIC ABSCESS
  4. ASPIRIN. [Concomitant]
     Active Substance: ASPIRIN
     Indication: MYELOFIBROSIS
     Dosage: 15 MG, BID
     Route: 048
  5. TAVANIC [Concomitant]
     Active Substance: LEVOFLOXACIN
     Indication: PRODUCT USED FOR UNKNOWN INDICATION
     Dosage: 500 MG, QD
     Route: 042
     Dates: start: 20150402, end: 20150416
  6. INCB018424 [Suspect]
     Active Substance: RUXOLITINIB
     Indication: MYELOFIBROSIS
     Dosage: 15 MG, BID
     Route: 048
     Dates: start: 20141113, end: 20150326
  7. LITALIR [Concomitant]
     Active Substance: HYDROXYUREA
     Indication: MYELOFIBROSIS
     Dosage: 500 MG, QD
     Route: 065
     Dates: start: 20150420
  8. ASPIRIN. [Concomitant]
     Active Substance: ASPIRIN
     Indication: HYPERTENSION
     Dosage: 100 MG, QD
     Route: 065
  9. SIMVASTATIN. [Concomitant]
     Active Substance: SIMVASTATIN
     Indication: HYPERCHOLESTEROLAEMIA
     Route: 065
     Dates: end: 20150406

REACTIONS (2)
  - Ileus paralytic [Recovered/Resolved]
  - Gastrointestinal candidiasis [Recovered/Resolved]

NARRATIVE: CASE EVENT DATE: 20150406
